FAERS Safety Report 4883359-0 (Version None)
Quarter: 2006Q1

REPORT INFORMATION
  Report Type: 
  Country: None (occurrence: None)
  Receive Date: 20060118
  Receipt Date: 20060109
  Transmission Date: 20060701
  Serious: Yes (Hospitalization, Other)
  Sender: FDA-Public Use
  Company Number: NO-JNJFOC-20051000005

PATIENT
  Sex: Male
  Weight: 57 kg

DRUGS (16)
  1. CONCERTA [Suspect]
     Route: 065
  2. CONCERTA [Suspect]
     Dosage: OCCASIONALLY 180MG DAY
     Route: 065
  3. CONCERTA [Suspect]
     Dosage: STARTED IN SPRING 2005
     Route: 065
  4. CONCERTA [Suspect]
     Route: 065
  5. TETRACYCLINE [Interacting]
     Route: 065
  6. TETRACYCLINE [Interacting]
     Indication: ACNE
     Route: 065
  7. RITALIN [Concomitant]
     Dosage: EVERY EVENING
     Route: 065
  8. OMEGA 3 [Concomitant]
     Route: 048
  9. MULTIVITAMIN [Concomitant]
     Route: 048
  10. MULTIVITAMIN [Concomitant]
     Route: 048
  11. MULTIVITAMIN [Concomitant]
     Route: 048
  12. MULTIVITAMIN [Concomitant]
     Route: 048
  13. MULTIVITAMIN [Concomitant]
     Route: 048
  14. MULTIVITAMIN [Concomitant]
     Route: 048
  15. MULTIVITAMIN [Concomitant]
     Route: 048
  16. MULTIVITAMIN [Concomitant]
     Route: 048

REACTIONS (5)
  - CARDIAC ARREST [None]
  - DRUG INTERACTION [None]
  - HYPERGLYCAEMIA [None]
  - PNEUMONIA ASPIRATION [None]
  - VENTRICULAR FIBRILLATION [None]
